FAERS Safety Report 17674805 (Version 6)
Quarter: 2025Q1

REPORT INFORMATION
  Report Type: Spontaneous
  Country: SK (occurrence: None)
  Receive Date: 20200416
  Receipt Date: 20250121
  Transmission Date: 20250409
  Serious: Yes (Death, Hospitalization, Other)
  Sender: ORION
  Company Number: SK-EMA-DD-20200406-SANDEVHP-160028

PATIENT
  Age: 57 Year
  Sex: Male

DRUGS (12)
  1. METHOTREXATE [Suspect]
     Active Substance: METHOTREXATE
     Indication: Systemic lupus erythematosus
     Dates: start: 2002
  2. PREDNISONE [Suspect]
     Active Substance: PREDNISONE
     Indication: Systemic lupus erythematosus
     Dates: start: 2002
  3. PREDNISONE [Suspect]
     Active Substance: PREDNISONE
     Dates: start: 201504
  4. AZATHIOPRINE [Suspect]
     Active Substance: AZATHIOPRINE
     Indication: Systemic lupus erythematosus
     Dates: start: 2002
  5. HYDROXYCHLOROQUINE SULFATE [Suspect]
     Active Substance: HYDROXYCHLOROQUINE SULFATE
     Indication: Systemic lupus erythematosus
     Dates: start: 2002
  6. CYCLOSPORINE [Suspect]
     Active Substance: CYCLOSPORINE
     Indication: Systemic lupus erythematosus
     Dates: start: 2002
  7. BELIMUMAB [Suspect]
     Active Substance: BELIMUMAB
     Indication: Systemic lupus erythematosus
     Dosage: 840 MG IN 4 WEEKS INTERVALS
     Dates: start: 20140401, end: 20151103
  8. CYCLOPHOSPHAMIDE [Suspect]
     Active Substance: CYCLOPHOSPHAMIDE
     Indication: Systemic lupus erythematosus
     Dates: start: 2002
  9. MYCOPHENOLATE MOFETIL [Suspect]
     Active Substance: MYCOPHENOLATE MOFETIL
     Indication: Systemic lupus erythematosus
     Dates: start: 2002
  10. MYCOPHENOLATE MOFETIL [Suspect]
     Active Substance: MYCOPHENOLATE MOFETIL
     Dates: start: 2010, end: 20160229
  11. MYCOPHENOLATE MOFETIL [Suspect]
     Active Substance: MYCOPHENOLATE MOFETIL
     Dates: start: 2003, end: 2014
  12. MYCOPHENOLATE MOFETIL [Suspect]
     Active Substance: MYCOPHENOLATE MOFETIL
     Dosage: QD
     Dates: start: 2014, end: 20160301

REACTIONS (22)
  - Respiratory failure [Fatal]
  - Cardiac arrest [Fatal]
  - Hypotension [Fatal]
  - Arrhythmia [Fatal]
  - Pneumonia [Fatal]
  - Mental impairment [Fatal]
  - Speech disorder [Not Recovered/Not Resolved]
  - Dizziness [Not Recovered/Not Resolved]
  - Progressive multifocal leukoencephalopathy [Fatal]
  - Product use in unapproved indication [Unknown]
  - Lymphopenia [Unknown]
  - Bulbar palsy [Not Recovered/Not Resolved]
  - Tremor [Not Recovered/Not Resolved]
  - JC virus infection [Not Recovered/Not Resolved]
  - Cerebral infarction [Unknown]
  - Quadriparesis [Not Recovered/Not Resolved]
  - Hemiparesis [Not Recovered/Not Resolved]
  - Cerebrovascular accident [Not Recovered/Not Resolved]
  - CD4 lymphocytes decreased [Unknown]
  - Brain stem syndrome [Not Recovered/Not Resolved]
  - Magnetic resonance imaging head abnormal [Unknown]
  - Dysarthria [Not Recovered/Not Resolved]

NARRATIVE: CASE EVENT DATE: 20151101
